FAERS Safety Report 6283999-0 (Version None)
Quarter: 2009Q3

REPORT INFORMATION
  Report Type: 
  Country: None (occurrence: None)
  Receive Date: 20090727
  Receipt Date: 20090722
  Transmission Date: 20100115
  Serious: Yes (Life-Threatening, Hospitalization, Disabling)
  Sender: FDA-Public Use
  Company Number: DK-BIOGENIDEC-2009BI011505

PATIENT
  Age: 52 Year
  Sex: Male
  Weight: 80 kg

DRUGS (5)
  1. TYSABRI [Suspect]
     Indication: MULTIPLE SCLEROSIS
     Route: 042
     Dates: start: 20080408, end: 20090209
  2. MODAFINIL [Concomitant]
     Indication: FATIGUE
     Route: 048
     Dates: start: 20070202
  3. CARDURAN RETARD [Concomitant]
     Indication: BLADDER DISORDER
     Route: 048
     Dates: start: 20070304
  4. AMLODIPINE [Concomitant]
     Indication: HYPERTENSION
     Route: 048
     Dates: start: 20070310
  5. BACLOFEN [Concomitant]
     Indication: MUSCLE SPASTICITY
     Route: 048
     Dates: start: 20070102

REACTIONS (2)
  - METASTATIC GASTRIC CANCER [None]
  - PAIN [None]
